FAERS Safety Report 7412803-X (Version None)
Quarter: 2011Q2

REPORT INFORMATION
  Report Type: 
  Country: None (occurrence: None)
  Receive Date: 20110413
  Receipt Date: 20110406
  Transmission Date: 20111010
  Serious: Yes (Hospitalization, Disabling)
  Sender: FDA-Public Use
  Company Number: B0690840A

PATIENT
  Sex: Female
  Weight: 51 kg

DRUGS (64)
  1. POSTERISAN [Concomitant]
     Dosage: 2G PER DAY
     Route: 054
     Dates: start: 20100401, end: 20100401
  2. MEYLON [Concomitant]
     Dosage: 20ML PER DAY
     Route: 042
     Dates: start: 20100402, end: 20100409
  3. VICCLOX [Concomitant]
     Dosage: 250MG PER DAY
     Route: 042
     Dates: start: 20100422, end: 20100422
  4. PRIMPERAN TAB [Concomitant]
     Dosage: 10MG PER DAY
     Route: 042
     Dates: start: 20100326, end: 20100327
  5. HEPARIN SODIUM [Concomitant]
     Dosage: 5ML PER DAY
     Route: 042
     Dates: start: 20100328, end: 20100328
  6. SODIUM CHLORIDE [Concomitant]
     Dosage: 20ML PER DAY
     Route: 042
     Dates: start: 20100329, end: 20100330
  7. VANCOMYCIN [Concomitant]
     Dosage: 1G PER DAY
     Route: 042
     Dates: start: 20100404, end: 20100404
  8. PARIET [Concomitant]
     Dosage: 10MG PER DAY
     Route: 048
     Dates: start: 20100324, end: 20100329
  9. VOLTAREN [Concomitant]
     Dosage: 75MG PER DAY
     Route: 054
     Dates: start: 20100326, end: 20100403
  10. LAXOBERON [Concomitant]
     Route: 048
     Dates: start: 20100324, end: 20100324
  11. VANCOMYCIN [Concomitant]
     Dosage: 1G PER DAY
     Route: 042
     Dates: start: 20100405, end: 20100412
  12. FLURBIPROFEN [Concomitant]
     Dosage: 50MG PER DAY
     Route: 042
     Dates: start: 20100406, end: 20100412
  13. UNKNOWN MEDICATION [Concomitant]
     Dosage: 1000ML PER DAY
     Route: 042
     Dates: start: 20100409, end: 20100420
  14. LENDORMIN [Concomitant]
     Dosage: .25MG PER DAY
     Route: 048
     Dates: start: 20100324, end: 20100329
  15. FLAGYL [Concomitant]
     Dosage: 1500MG PER DAY
     Route: 048
     Dates: start: 20100402, end: 20100408
  16. NAUZELIN [Concomitant]
     Dosage: 30MG PER DAY
     Route: 048
     Dates: start: 20100324, end: 20100329
  17. VANCOMYCIN HYDROCHLORIDE [Concomitant]
     Dosage: 2000MG PER DAY
     Route: 048
     Dates: start: 20100402, end: 20100405
  18. MORPHINE HYDROCHLORIDE [Concomitant]
     Dosage: 10MG PER DAY
     Dates: start: 20100324, end: 20100330
  19. UNKNOWN MEDICATION [Concomitant]
     Dosage: 1000ML PER DAY
     Route: 042
     Dates: start: 20100325, end: 20100408
  20. PRIMPERAN TAB [Concomitant]
     Dosage: 10MG PER DAY
     Route: 042
     Dates: start: 20100419, end: 20100419
  21. ALKERAN [Suspect]
     Indication: STEM CELL TRANSPLANT
     Dosage: 200MGM2 PER DAY
     Route: 042
     Dates: start: 20100326, end: 20100326
  22. GABAPEN [Concomitant]
     Dosage: 400MG PER DAY
     Route: 048
     Dates: start: 20100324, end: 20100324
  23. MAGNESIUM OXIDE [Concomitant]
     Dosage: 2.01G PER DAY
     Route: 048
     Dates: start: 20100324, end: 20100329
  24. HACHIAZULE [Concomitant]
     Dosage: 2MG PER DAY
     Route: 002
     Dates: start: 20100328, end: 20100329
  25. DUROTEP [Concomitant]
     Route: 062
     Dates: start: 20100325, end: 20100421
  26. SOLDEM 3A [Concomitant]
     Dosage: 1000ML PER DAY
     Route: 042
     Dates: start: 20100324, end: 20100421
  27. SOLDEM 3A [Concomitant]
     Dosage: 500ML PER DAY
     Route: 042
     Dates: start: 20100422, end: 20100422
  28. MEYLON [Concomitant]
     Dosage: 40ML PER DAY
     Route: 042
     Dates: start: 20100324, end: 20100401
  29. MORPHINE HYDROCHLORIDE [Concomitant]
     Dosage: 12MG PER DAY
     Dates: start: 20100331, end: 20100331
  30. MORPHINE HYDROCHLORIDE [Concomitant]
     Dosage: 20MG PER DAY
     Dates: start: 20100405, end: 20100405
  31. OLIVE LEAF [Concomitant]
     Dosage: 480MG PER DAY
     Dates: start: 20100324, end: 20100416
  32. SEROTONE [Concomitant]
     Dosage: 10MG PER DAY
     Route: 042
     Dates: start: 20100326, end: 20100326
  33. GRANISETRON HCL [Concomitant]
     Dosage: 3MG PER DAY
     Route: 042
     Dates: start: 20100326, end: 20100326
  34. VENOGLOBULIN [Concomitant]
     Dosage: 2.5MG PER DAY
     Route: 042
     Dates: start: 20100326, end: 20100327
  35. POTASSIUM CHLORIDE [Concomitant]
     Dosage: 20MEQ PER DAY
     Route: 042
     Dates: start: 20100331, end: 20100421
  36. METILON [Concomitant]
     Dosage: 250MG PER DAY
     Dates: start: 20100402, end: 20100404
  37. ITRIZOLE [Concomitant]
     Dosage: 20ML PER DAY
     Route: 048
     Dates: start: 20100324, end: 20100329
  38. ZOVIRAX [Concomitant]
     Dosage: 1G PER DAY
     Route: 048
     Dates: start: 20100324, end: 20100329
  39. PHYSIO 35 [Concomitant]
     Dosage: 500ML PER DAY
     Route: 042
     Dates: start: 20100325, end: 20100325
  40. PANTOL [Concomitant]
     Dosage: 500MG PER DAY
     Dates: start: 20100327, end: 20100401
  41. OMEPRAL [Concomitant]
     Dosage: 40MG PER DAY
     Route: 042
     Dates: start: 20100324, end: 20100416
  42. MORPHINE HYDROCHLORIDE [Concomitant]
     Dosage: 10MG PER DAY
     Dates: start: 20100401, end: 20100404
  43. MORPHINE HYDROCHLORIDE [Concomitant]
     Dosage: 40MG PER DAY
     Dates: start: 20100406, end: 20100406
  44. MORPHINE HYDROCHLORIDE [Concomitant]
     Dosage: 30MG PER DAY
     Dates: start: 20100407, end: 20100409
  45. VICCLOX [Concomitant]
     Dosage: 500MG PER DAY
     Route: 042
     Dates: start: 20100327, end: 20100421
  46. CONCENTRATED RED BLOOD CELLS [Concomitant]
     Dosage: 2IUAX PER DAY
     Dates: start: 20100324, end: 20100324
  47. VANCOMYCIN [Concomitant]
     Dates: start: 20100404, end: 20100404
  48. LOXONIN [Concomitant]
     Dosage: 180MG PER DAY
     Route: 048
     Dates: start: 20100324, end: 20100324
  49. AMIKACIN SULFATE [Concomitant]
     Dosage: 15MG PER DAY
     Route: 048
     Dates: start: 20100324, end: 20100329
  50. MORPHINE HYDROCHLORIDE [Concomitant]
     Dosage: 10MG PER DAY
     Dates: start: 20100411, end: 20100413
  51. VICCLOX [Concomitant]
     Dosage: 250MG PER DAY
     Route: 042
     Dates: start: 20100326, end: 20100326
  52. VANCOMYCIN [Concomitant]
     Dosage: .5G PER DAY
     Route: 042
     Dates: start: 20100403, end: 20100403
  53. NEUTROGIN [Concomitant]
     Dosage: 250MCG PER DAY
     Dates: start: 20100330, end: 20100409
  54. DIOVAN [Concomitant]
     Dosage: 80MG PER DAY
     Route: 048
     Dates: start: 20100324, end: 20100329
  55. FRANDOL S [Concomitant]
     Dosage: 40MG PER DAY
     Route: 062
     Dates: start: 20100329, end: 20100418
  56. PHYSIO 35 [Concomitant]
     Dosage: 1000ML PER DAY
     Route: 042
     Dates: start: 20100324, end: 20100324
  57. FUROSEMIDE [Concomitant]
     Dosage: 20MG PER DAY
     Route: 042
     Dates: start: 20100326, end: 20100326
  58. HAPTOGLOBIN [Concomitant]
     Dosage: 200ML PER DAY
     Route: 042
     Dates: start: 20100329, end: 20100329
  59. MEROPEN [Concomitant]
     Dosage: 2G PER DAY
     Route: 042
     Dates: start: 20100401, end: 20100412
  60. SERENACE [Concomitant]
     Dosage: .75MG PER DAY
     Route: 048
     Dates: start: 20100324, end: 20100329
  61. NAUZELIN [Concomitant]
     Route: 054
     Dates: start: 20100329, end: 20100403
  62. METILON [Concomitant]
     Dosage: 500MG PER DAY
     Dates: start: 20100401, end: 20100401
  63. CONCENTRATED RED BLOOD CELLS [Concomitant]
     Dosage: 2IUAX PER DAY
     Dates: start: 20100401, end: 20100401
  64. FUNGUARD [Concomitant]
     Dosage: 50MG PER DAY
     Route: 042
     Dates: start: 20100402, end: 20100409

REACTIONS (8)
  - URINE OUTPUT DECREASED [None]
  - DIARRHOEA [None]
  - PYREXIA [None]
  - PSEUDOMEMBRANOUS COLITIS [None]
  - FEBRILE NEUTROPENIA [None]
  - NAUSEA [None]
  - DECREASED APPETITE [None]
  - STOMATITIS [None]
